FAERS Safety Report 9512255 (Version 1)
Quarter: 2013Q3

REPORT INFORMATION
  Report Type: Spontaneous
  Country: US (occurrence: US)
  Receive Date: 20130910
  Receipt Date: 20130910
  Transmission Date: 20140515
  Serious: No
  Sender: FDA-Public Use
  Company Number: US-SANOFI-AVENTIS-2012SA071577

PATIENT
  Age: 55 Year
  Sex: Female
  Weight: 78.4 kg

DRUGS (4)
  1. TRENTAL [Suspect]
     Indication: PERIPHERAL VASCULAR DISORDER
     Route: 048
     Dates: start: 201207
  2. IBUPROFEN [Concomitant]
  3. METFORMIN [Concomitant]
  4. GLYBURIDE [Concomitant]

REACTIONS (1)
  - Medication residue present [Not Recovered/Not Resolved]
